FAERS Safety Report 5351072-1 (Version None)
Quarter: 2007Q2

REPORT INFORMATION
  Report Type: 
  Country: None (occurrence: None)
  Receive Date: 20070608
  Receipt Date: 20070530
  Transmission Date: 20071010
  Serious: Yes (Hospitalization)
  Sender: FDA-Public Use
  Company Number: DE-PFIZER INC-2007012850

PATIENT
  Sex: Male

DRUGS (5)
  1. EXUBERA [Suspect]
     Indication: DIABETES MELLITUS NON-INSULIN-DEPENDENT
     Route: 048
     Dates: start: 20060801, end: 20070213
  2. METFORMIN HCL [Concomitant]
     Route: 048
  3. GLIBENCLAMIDE [Concomitant]
     Route: 048
  4. IBUPROFEN [Concomitant]
     Route: 048
     Dates: start: 20070116, end: 20070123
  5. ENALAPRIL MALEATE [Concomitant]
     Indication: HYPERTENSION

REACTIONS (3)
  - HAEMORRHAGE [None]
  - LEUKOPENIA [None]
  - THROMBOCYTOPENIA [None]
